FAERS Safety Report 6995940-3 (Version None)
Quarter: 2010Q3

REPORT INFORMATION
  Report Type: 
  Country: None (occurrence: None)
  Receive Date: 20100918
  Receipt Date: 20090128
  Transmission Date: 20110219
  Serious: No
  Sender: FDA-Public Use
  Company Number: US-WYE-H06962408

PATIENT
  Sex: Female

DRUGS (2)
  1. PREMPRO [Suspect]
     Indication: HORMONE REPLACEMENT THERAPY
     Route: 048
     Dates: end: 20081124
  2. PREMPRO [Suspect]
     Indication: HOT FLUSH

REACTIONS (2)
  - VAGINITIS BACTERIAL [None]
  - VULVOVAGINAL MYCOTIC INFECTION [None]
